FAERS Safety Report 20910593 (Version 2)
Quarter: 2022Q2

REPORT INFORMATION
  Report Type: Spontaneous
  Country: US (occurrence: US)
  Receive Date: 20220603
  Receipt Date: 20220603
  Transmission Date: 20220720
  Serious: Yes (Other)
  Sender: FDA-Public Use
  Company Number: US-PFIZER INC-202200756648

PATIENT
  Age: 16 Year
  Sex: Female

DRUGS (2)
  1. PENICILLIN G PROCAINE [Suspect]
     Active Substance: PENICILLIN G PROCAINE
     Indication: Syphilis
     Dosage: 480000 IU
  2. PROBENECID [Suspect]
     Active Substance: PROBENECID
     Indication: Syphilis
     Dosage: UNK

REACTIONS (5)
  - Hoigne^s syndrome [Recovered/Resolved]
  - Amnesia [Recovered/Resolved]
  - Speech disorder [Recovered/Resolved]
  - Incoherent [Recovered/Resolved]
  - Agitation [Recovered/Resolved]
